FAERS Safety Report 6823948-7 (Version None)
Quarter: 2010Q3

REPORT INFORMATION
  Report Type: 
  Country: None (occurrence: None)
  Receive Date: 20100708
  Receipt Date: 20060922
  Transmission Date: 20110219
  Serious: No
  Sender: FDA-Public Use
  Company Number: US-PFIZER INC-2006117178

PATIENT
  Sex: Female
  Weight: 104.33 kg

DRUGS (4)
  1. CHANTIX [Suspect]
     Indication: SMOKING CESSATION THERAPY
     Dates: start: 20060901
  2. PERCOCET [Concomitant]
  3. MONTELUKAST SODIUM [Concomitant]
  4. ZOLOFT [Concomitant]

REACTIONS (3)
  - ABDOMINAL PAIN UPPER [None]
  - ASTHMA [None]
  - SENSATION OF BLOOD FLOW [None]
